FAERS Safety Report 7726083-9 (Version None)
Quarter: 2011Q3

REPORT INFORMATION
  Report Type: 
  Country: None (occurrence: None)
  Receive Date: 20110902
  Receipt Date: 20110818
  Transmission Date: 20111222
  Serious: Yes (Other)
  Sender: FDA-Public Use
  Company Number: JP-WATSON-2011-13513

PATIENT
  Age: 58 Year
  Sex: Female

DRUGS (1)
  1. FUROSEMIDE [Suspect]
     Indication: OEDEMA PERIPHERAL
     Dosage: 120 MG, DAILY
     Route: 065

REACTIONS (4)
  - NEPHROCALCINOSIS [None]
  - RENAL CYST [None]
  - BLOOD POTASSIUM DECREASED [None]
  - BLOOD PARATHYROID HORMONE INCREASED [None]
